FAERS Safety Report 6029218-1 (Version None)
Quarter: 2009Q1

REPORT INFORMATION
  Report Type: 
  Country: None (occurrence: None)
  Receive Date: 20090106
  Receipt Date: 20081217
  Transmission Date: 20090719
  Serious: No
  Sender: FDA-Public Use
  Company Number: US-B.I. PHARMACEUTICALS,INC./RIDGEFIELD-2008-BP-16679BP

PATIENT
  Sex: Male
  Weight: 62 kg

DRUGS (6)
  1. CATAPRES-TTS-1 [Suspect]
     Indication: HYPERTENSION
     Dosage: .3MG
     Route: 061
     Dates: start: 20081023, end: 20081028
  2. CATAPRES-TTS-1 [Suspect]
     Indication: BLOOD PRESSURE MANAGEMENT
  3. ENALAPRIL MALEATE [Concomitant]
     Indication: HYPERTENSION
  4. ASPIRIN [Concomitant]
     Indication: CARDIOVASCULAR EVENT PROPHYLAXIS
  5. ALPRAZOLAM [Concomitant]
  6. GINKGO BILOBA [Concomitant]

REACTIONS (5)
  - CHEST PAIN [None]
  - DRUG INEFFECTIVE [None]
  - FATIGUE [None]
  - NERVOUSNESS [None]
  - TENSION [None]
